FAERS Safety Report 7790025-0 (Version None)
Quarter: 2011Q3

REPORT INFORMATION
  Report Type: 
  Country: None (occurrence: None)
  Receive Date: 20110930
  Receipt Date: 20101216
  Transmission Date: 20111222
  Serious: No
  Sender: FDA-Public Use
  Company Number: US-ASTRAZENECA-2010SE61522

PATIENT
  Sex: Female

DRUGS (2)
  1. ARIMIDEX [Suspect]
     Route: 048
  2. ANASTROZOLE [Suspect]

REACTIONS (4)
  - ADVERSE DRUG REACTION [None]
  - MOOD SWINGS [None]
  - INSOMNIA [None]
  - PAIN [None]
